FAERS Safety Report 8925384 (Version 1)
Quarter: 2012Q4

REPORT INFORMATION
  Report Type: 
  Country: GB (occurrence: GB)
  Receive Date: 20121126
  Receipt Date: 20121126
  Transmission Date: 20130627
  Serious: Yes (Other)
  Sender: FDA-Public Use
  Company Number: PHHY2012GB105799

PATIENT
  Age: 78 Year
  Sex: Male

DRUGS (5)
  1. TRIMETHOPRIM [Suspect]
     Indication: URINARY TRACT INFECTION
     Dosage: 100 mg, UNK
     Dates: start: 201112
  2. AMOXICILLIN [Suspect]
     Indication: URINARY TRACT INFECTION
     Dosage: UNK UKN, UNK
  3. BISOPROLOL [Concomitant]
     Indication: ATRIAL FIBRILLATION
  4. LANSOPRAZOLE [Concomitant]
  5. WARFARIN [Concomitant]

REACTIONS (5)
  - Hallucination [Unknown]
  - Confusional state [Unknown]
  - Lethargy [Unknown]
  - Incontinence [Unknown]
  - Drug ineffective [Unknown]
